FAERS Safety Report 4695641-0 (Version None)
Quarter: 2005Q2

REPORT INFORMATION
  Report Type: 
  Country: None (occurrence: None)
  Receive Date: 20050608
  Receipt Date: 20050502
  Transmission Date: 20051028
  Serious: Yes (Life-Threatening)
  Sender: FDA-Public Use
  Company Number: A03200501274

PATIENT
  Age: 40 Year
  Sex: Female
  Weight: 121.564 kg

DRUGS (7)
  1. ELOXATIN [Suspect]
     Indication: COLON CANCER
     Dosage: 170 MG Q3W - INTRAVENOUS NOS
     Route: 042
     Dates: start: 20050324, end: 20050324
  2. FLUOROURACIL [Concomitant]
  3. LEUCOVORIN [Concomitant]
  4. PALONOSETRON [Concomitant]
  5. DEXAMETHASONE [Concomitant]
  6. PROCHLORPERAZINE EDISYLATE [Concomitant]
  7. OXYCODONE [Concomitant]

REACTIONS (6)
  - ABDOMINAL PAIN [None]
  - BLOOD PRESSURE INCREASED [None]
  - DYSPNOEA [None]
  - GENERALISED OEDEMA [None]
  - SWOLLEN TONGUE [None]
  - TREMOR [None]
